FAERS Safety Report 4499495-7 (Version None)
Quarter: 2004Q4

REPORT INFORMATION
  Report Type: 
  Country: None (occurrence: None)
  Receive Date: 20040928
  Receipt Date: 20040618
  Transmission Date: 20050328
  Serious: No
  Sender: FDA-Public Use
  Company Number: 04P-163-0264447-00

PATIENT
  Age: 22 Year
  Sex: Female
  Weight: 47.6277 kg

DRUGS (7)
  1. HUMIRA [Suspect]
     Indication: JUVENILE ARTHRITIS
     Dosage: 40 MG, 1 IN 2 WK, SUCUTANEOUS
     Route: 058
     Dates: start: 20040201, end: 20040617
  2. SULFASALAZINE [Concomitant]
  3. CELECOXIB [Concomitant]
  4. CEFADROXIL [Concomitant]
  5. TYLENOL PM [Concomitant]
  6. PANTOPRAZOLE [Concomitant]
  7. IBUPROFEN [Concomitant]

REACTIONS (1)
  - VARICELLA [None]
